FAERS Safety Report 23882822 (Version 1)
Quarter: 2024Q2

REPORT INFORMATION
  Report Type: Report from Study
  Country: CL (occurrence: CL)
  Receive Date: 20240522
  Receipt Date: 20240522
  Transmission Date: 20240716
  Serious: Yes (Other)
  Sender: FDA-Public Use
  Company Number: CL-JNJFOC-20240460755

PATIENT
  Age: 40 Year
  Sex: Female

DRUGS (1)
  1. SIMPONI [Suspect]
     Active Substance: GOLIMUMAB
     Indication: Psoriatic arthropathy
     Route: 058
     Dates: start: 20220427

REACTIONS (4)
  - Nephrolithiasis [Unknown]
  - Uveitis [Recovering/Resolving]
  - Pyelonephritis [Unknown]
  - Ureteral catheterisation [Unknown]

NARRATIVE: CASE EVENT DATE: 20231001
